FAERS Safety Report 8404090-0 (Version None)
Quarter: 2012Q2

REPORT INFORMATION
  Report Type: 
  Country: None (occurrence: None)
  Receive Date: 20120601
  Receipt Date: 20120530
  Transmission Date: 20120825
  Serious: Yes (Other)
  Sender: FDA-Public Use
  Company Number: FI-ROCHE-1073785

PATIENT
  Age: 20 Year
  Sex: Male

DRUGS (1)
  1. LARIAM [Suspect]
     Indication: PRODUCT USED FOR UNKNOWN INDICATION
     Route: 048
     Dates: start: 20120101, end: 20120210

REACTIONS (5)
  - HYPOAESTHESIA [None]
  - NAUSEA [None]
  - ANXIETY [None]
  - PANIC DISORDER [None]
  - DIZZINESS [None]
